FAERS Safety Report 17225120 (Version 2)
Quarter: 2020Q1

REPORT INFORMATION
  Report Type: Spontaneous
  Country: AT (occurrence: AT)
  Receive Date: 20200102
  Receipt Date: 20200131
  Transmission Date: 20200409
  Serious: Yes (Other)
  Sender: FDA-Public Use
  Company Number: AT-MYLANLABS-2019M1132088

PATIENT
  Age: 59 Year
  Sex: Female
  Weight: 59 kg

DRUGS (8)
  1. CARBOPLATIN. [Suspect]
     Active Substance: CARBOPLATIN
     Indication: NON-SMALL CELL LUNG CANCER METASTATIC
     Dosage: 1 OT, 21D (AUC 6)
     Route: 065
     Dates: start: 20190304, end: 201904
  2. EUTHYROX [Concomitant]
     Active Substance: LEVOTHYROXINE SODIUM
     Dosage: UNK
  3. PACLITAXEL. [Suspect]
     Active Substance: PACLITAXEL
     Dosage: 4200 MILLIGRAM/SQ. METER, QD
     Route: 065
     Dates: start: 20190304, end: 201904
  4. DENOSUMAB [Concomitant]
     Active Substance: DENOSUMAB
     Dosage: UNK
  5. AVASTIN [Suspect]
     Active Substance: BEVACIZUMAB
     Indication: NON-SMALL CELL LUNG CANCER METASTATIC
     Dosage: 15 MG/KG, QD
     Route: 065
     Dates: start: 20190304, end: 201904
  6. PACLITAXEL. [Suspect]
     Active Substance: PACLITAXEL
     Indication: NON-SMALL CELL LUNG CANCER METASTATIC
     Dosage: 200 MILLIGRAM/SQ. METER, Q21D
     Route: 065
     Dates: start: 20190304, end: 201904
  7. TECENTRIQ [Suspect]
     Active Substance: ATEZOLIZUMAB
     Indication: NON-SMALL CELL LUNG CANCER METASTATIC
     Dosage: 1200 MG, 21D
     Route: 065
     Dates: start: 20190304, end: 201904
  8. CAL D VITA [Concomitant]
     Dosage: UNK
     Route: 048

REACTIONS (2)
  - Immune-mediated hepatitis [Recovering/Resolving]
  - Pathological fracture [Unknown]

NARRATIVE: CASE EVENT DATE: 201904
